FAERS Safety Report 24613116 (Version 1)
Quarter: 2024Q4

REPORT INFORMATION
  Report Type: Report from Study
  Country: US (occurrence: US)
  Receive Date: 20241113
  Receipt Date: 20241113
  Transmission Date: 20250114
  Serious: Yes (Other)
  Sender: ROCHE
  Company Number: US-ROCHE-10000130126

PATIENT

DRUGS (1)
  1. ALTEPLASE [Suspect]
     Active Substance: ALTEPLASE
     Indication: Retinal artery occlusion
     Route: 042

REACTIONS (3)
  - Optic disc haemorrhage [Unknown]
  - Retinal detachment [Unknown]
  - Retinal oedema [Unknown]
